FAERS Safety Report 7388090-8 (Version None)
Quarter: 2011Q2

REPORT INFORMATION
  Report Type: 
  Country: None (occurrence: None)
  Receive Date: 20110401
  Receipt Date: 20110330
  Transmission Date: 20111010
  Serious: Yes (Other)
  Sender: FDA-Public Use
  Company Number: US-PFIZER INC-2009215427

PATIENT
  Sex: Female
  Weight: 49 kg

DRUGS (8)
  1. NORVASC [Suspect]
     Dosage: 5 MG, 1X/DAY
     Route: 048
     Dates: start: 20110201
  2. DILACOR XR [Concomitant]
     Indication: HYPERTENSION
     Dosage: 120 MG, 1X/DAY
     Dates: start: 20090430, end: 20090525
  3. KLONOPIN [Concomitant]
     Indication: STRESS
     Dosage: UNK
  4. FROVA [Concomitant]
     Indication: MIGRAINE
     Dosage: UNK
  5. ARIMIDEX [Suspect]
     Indication: BREAST CANCER
     Dosage: 1 MG, UNK
     Dates: start: 20080201, end: 20090501
  6. ATACAND [Concomitant]
     Indication: HYPERTENSION
     Dosage: 16 MG, UNK
  7. TAMOXIFEN [Concomitant]
     Indication: BREAST CANCER
     Dosage: UNK
     Dates: start: 20090523
  8. NORVASC [Suspect]
     Indication: HYPERTENSION
     Dosage: 5 MG, 1X/DAY
     Route: 048
     Dates: start: 20090120, end: 20090429

REACTIONS (1)
  - NEUROPATHY PERIPHERAL [None]
